FAERS Safety Report 15907354 (Version 1)
Quarter: 2019Q1

REPORT INFORMATION
  Report Type: Spontaneous
  Country: GB (occurrence: GB)
  Receive Date: 20190204
  Receipt Date: 20190204
  Transmission Date: 20190417
  Serious: Yes (Hospitalization, Other)
  Sender: FDA-Public Use
  Company Number: GB-AKRON, INC.-2062118

PATIENT
  Age: 90 Year

DRUGS (1)
  1. COSOPT [Suspect]
     Active Substance: DORZOLAMIDE HYDROCHLORIDE\TIMOLOL MALEATE
     Route: 047

REACTIONS (5)
  - Syncope [Recovering/Resolving]
  - Atrial fibrillation [Recovering/Resolving]
  - Peripheral swelling [Recovering/Resolving]
  - Loss of consciousness [Recovering/Resolving]
  - Bradycardia [Recovering/Resolving]
